FAERS Safety Report 12897680 (Version 1)
Quarter: 2016Q4

REPORT INFORMATION
  Report Type: Spontaneous
  Country: US (occurrence: US)
  Receive Date: 20161031
  Receipt Date: 20161031
  Transmission Date: 20170207
  Serious: No
  Sender: FDA-Public Use
  Company Number: US-ELI_LILLY_AND_COMPANY-US201607008823

PATIENT
  Age: 44 Year
  Sex: Male

DRUGS (8)
  1. CYMBALTA [Suspect]
     Active Substance: DULOXETINE HYDROCHLORIDE
     Dosage: 60 MG, QD
     Route: 065
     Dates: start: 2014, end: 201501
  2. DEPAKOTE [Concomitant]
     Active Substance: DIVALPROEX SODIUM
     Dosage: 500 MG, EACH EVENING
     Route: 065
  3. DEPAKOTE [Concomitant]
     Active Substance: DIVALPROEX SODIUM
     Dosage: 250 MG, EACH EVENING
     Route: 065
  4. CYMBALTA [Suspect]
     Active Substance: DULOXETINE HYDROCHLORIDE
     Dosage: 120 MG, QD
     Route: 065
     Dates: end: 2014
  5. VALIUM [Concomitant]
     Active Substance: DIAZEPAM
     Dosage: 5 MG, BID
     Route: 065
  6. MELATONIN [Concomitant]
     Active Substance: MELATONIN
     Dosage: UNK, EACH EVENING
     Route: 065
  7. VALIUM [Concomitant]
     Active Substance: DIAZEPAM
     Dosage: 25 MG, QD
     Route: 065
  8. CYMBALTA [Suspect]
     Active Substance: DULOXETINE HYDROCHLORIDE
     Indication: PRODUCT USED FOR UNKNOWN INDICATION
     Dosage: UNK, UNKNOWN
     Route: 065

REACTIONS (5)
  - Nausea [Unknown]
  - Insomnia [Unknown]
  - Paraesthesia [Unknown]
  - Tremor [Unknown]
  - Drug withdrawal syndrome [Unknown]

NARRATIVE: CASE EVENT DATE: 201501
